FAERS Safety Report 12474518 (Version 1)
Quarter: 2016Q2

REPORT INFORMATION
  Report Type: Spontaneous
  Country: US (occurrence: None)
  Receive Date: 20160616
  Receipt Date: 20160616
  Transmission Date: 20160815
  Serious: Yes (Other)
  Sender: FDA-Public Use
  Company Number: None

PATIENT
  Age: 70 Year
  Sex: Male
  Weight: 78.74 kg

DRUGS (9)
  1. METFORMIN [Concomitant]
     Active Substance: METFORMIN HYDROCHLORIDE
  2. ATORVASTATIN [Concomitant]
     Active Substance: ATORVASTATIN
  3. PANTOPRAZOLE [Concomitant]
     Active Substance: PANTOPRAZOLE SODIUM
  4. NINTEDANIB 150 MG BOEHRINGER INGELHEIM [Suspect]
     Active Substance: NINTEDANIB
     Indication: IDIOPATHIC PULMONARY FIBROSIS
     Route: 048
     Dates: start: 20160427, end: 20160527
  5. MULTIVITAMINS [Concomitant]
     Active Substance: VITAMINS
  6. LISINOPRIL. [Concomitant]
     Active Substance: LISINOPRIL
  7. ZOLPIDEM [Concomitant]
     Active Substance: ZOLPIDEM\ZOLPIDEM TARTRATE
  8. CARVEDILOL. [Concomitant]
     Active Substance: CARVEDILOL
  9. ASPIRIN. [Concomitant]
     Active Substance: ASPIRIN

REACTIONS (3)
  - Blood alkaline phosphatase increased [None]
  - Transaminases increased [None]
  - Thrombocytopenia [None]

NARRATIVE: CASE EVENT DATE: 20160524
